FAERS Safety Report 6335484-5 (Version None)
Quarter: 2009Q3

REPORT INFORMATION
  Report Type: 
  Country: None (occurrence: None)
  Receive Date: 20090831
  Receipt Date: 20090824
  Transmission Date: 20100115
  Serious: Yes (Hospitalization)
  Sender: FDA-Public Use
  Company Number: PHHO2009BE05450

PATIENT
  Sex: Female
  Weight: 103 kg

DRUGS (3)
  1. RAD 666 RAD+TAB+CMAS [Suspect]
     Indication: BREAST CANCER
     Dosage: 5 MG/DAY
     Route: 048
     Dates: start: 20081021
  2. NAVELBINE [Suspect]
     Indication: BREAST CANCER
  3. HERCEPTIN [Concomitant]
     Indication: BREAST CANCER

REACTIONS (4)
  - FEBRILE NEUTROPENIA [None]
  - LEUKOPENIA [None]
  - OROPHARYNGEAL PAIN [None]
  - PYREXIA [None]
